FAERS Safety Report 5708729-X (Version None)
Quarter: 2008Q2

REPORT INFORMATION
  Report Type: 
  Country: None (occurrence: None)
  Receive Date: 20080417
  Receipt Date: 20080407
  Transmission Date: 20081010
  Serious: Yes (Death)
  Sender: FDA-Public Use
  Company Number: ES-ELI_LILLY_AND_COMPANY-ES200804001708

PATIENT
  Age: 58 Year
  Sex: Female

DRUGS (1)
  1. EVISTA [Suspect]
     Indication: MENOPAUSE
     Dosage: 60 MG, DAILY (1/D)
     Route: 048
     Dates: end: 20040301

REACTIONS (1)
  - OVARIAN NEOPLASM [None]
